FAERS Safety Report 6504657-0 (Version None)
Quarter: 2009Q4

REPORT INFORMATION
  Report Type: 
  Country: None (occurrence: None)
  Receive Date: 20091218
  Receipt Date: 20091208
  Transmission Date: 20100525
  Serious: Yes (Other)
  Sender: FDA-Public Use
  Company Number: US-BIOGENIDEC-2009BI040840

PATIENT
  Age: 37 Year
  Sex: Female

DRUGS (3)
  1. TYSABRI [Suspect]
     Indication: MULTIPLE SCLEROSIS
     Route: 042
     Dates: start: 20070417, end: 20080612
  2. TYSABRI [Suspect]
     Route: 042
     Dates: start: 20081024, end: 20081121
  3. TYSABRI [Suspect]
     Route: 042
     Dates: start: 20091207

REACTIONS (1)
  - PRE-ECLAMPSIA [None]
